FAERS Safety Report 6914255-2 (Version None)
Quarter: 2010Q3

REPORT INFORMATION
  Report Type: 
  Country: None (occurrence: None)
  Receive Date: 20100809
  Receipt Date: 20100803
  Transmission Date: 20110219
  Serious: Yes (Death, Hospitalization)
  Sender: FDA-Public Use
  Company Number: A0874122A

PATIENT
  Age: 40 Year
  Sex: Male
  Weight: 142 kg

DRUGS (5)
  1. TOPOTECAN [Suspect]
     Dosage: 1.2MGM2 VARIABLE DOSE
     Route: 042
     Dates: start: 20100525, end: 20100531
  2. VELIPARIB [Suspect]
     Dosage: 160MG CUMULATIVE DOSE
     Route: 048
     Dates: start: 20100525, end: 20100601
  3. CARBOPLATIN [Suspect]
     Dosage: 2050MG CUMULATIVE DOSE
     Route: 042
     Dates: start: 20100525, end: 20100531
  4. CYTARABINE [Concomitant]
  5. CLOFARABINE [Concomitant]

REACTIONS (3)
  - DISEASE PROGRESSION [None]
  - HYPERBILIRUBINAEMIA [None]
  - HYPONATRAEMIA [None]
